FAERS Safety Report 5009608-6 (Version None)
Quarter: 2006Q2

REPORT INFORMATION
  Report Type: 
  Country: None (occurrence: None)
  Receive Date: 20060522
  Receipt Date: 20060512
  Transmission Date: 20061013
  Serious: Yes (Other)
  Sender: FDA-Public Use
  Company Number: 2006063730

PATIENT
  Sex: Female

DRUGS (1)
  1. UNISOM [Suspect]
     Dosage: 9 TABLETS ONCE, ORAL
     Route: 048

REACTIONS (2)
  - EXPRESSIVE LANGUAGE DISORDER [None]
  - INCORRECT DOSE ADMINISTERED [None]
